FAERS Safety Report 5135135-1 (Version None)
Quarter: 2006Q4

REPORT INFORMATION
  Report Type: 
  Country: None (occurrence: None)
  Receive Date: 20060831
  Receipt Date: 20060511
  Transmission Date: 20070319
  Serious: No
  Sender: FDA-Public Use
  Company Number: 2006-BP-05374BP

PATIENT
  Sex: Female

DRUGS (7)
  1. SPIRIVA [Suspect]
     Indication: CHRONIC OBSTRUCTIVE PULMONARY DISEASE
     Dosage: 18 MCG (18 MCG),IH
     Route: 055
     Dates: start: 20060401
  2. CALAN [Concomitant]
  3. DYAZIDE [Concomitant]
  4. MICARDIS [Concomitant]
  5. CATAPRES TS (CLONIDINE HYDROCHLORIDE) [Concomitant]
  6. PREVACID [Concomitant]
  7. CALCIUM [Concomitant]

REACTIONS (1)
  - DRUG INEFFECTIVE [None]
